FAERS Safety Report 21714993 (Version 3)
Quarter: 2022Q4

REPORT INFORMATION
  Report Type: Spontaneous
  Country: DE (occurrence: DE)
  Receive Date: 20221212
  Receipt Date: 20221220
  Transmission Date: 20230112
  Serious: Yes (Death, Hospitalization, Other)
  Sender: FDA-Public Use
  Company Number: DE-002147023-NVSC2021DE178303

PATIENT
  Sex: Female
  Weight: 85 kg

DRUGS (10)
  1. METHOTREXATE [Suspect]
     Active Substance: METHOTREXATE
     Indication: Psoriasis
     Dosage: 7.5 MG, QW (SUNDAY)
     Route: 058
     Dates: start: 20200608, end: 20201221
  2. METHOTREXATE [Suspect]
     Active Substance: METHOTREXATE
     Indication: Nail psoriasis
     Dosage: 10 MG
     Route: 058
     Dates: start: 20210316
  3. BISOPROLOL [Suspect]
     Active Substance: BISOPROLOL
     Indication: Hypertension
     Dosage: 5 MG
     Route: 048
     Dates: start: 20210512
  4. BISOPROLOL [Suspect]
     Active Substance: BISOPROLOL
     Dosage: 2.5 MG, QD
     Route: 048
     Dates: start: 20210513
  5. CANDESARTAN [Concomitant]
     Active Substance: CANDESARTAN
     Indication: Hypertension
     Dosage: 8 MG, QD (MORNING) (1-0-0)
     Route: 048
  6. CANDESARTAN [Concomitant]
     Active Substance: CANDESARTAN
     Dosage: 5 MG, QD (MORNING) (1-0-0)
     Route: 048
  7. ASPIRIN [Concomitant]
     Active Substance: ASPIRIN
     Indication: Product used for unknown indication
     Dosage: 1 DOSAGE FORM, QD (1-0-0)
     Route: 065
  8. METAMIZOLE [Concomitant]
     Active Substance: METAMIZOLE
     Indication: Product used for unknown indication
     Dosage: UNK
     Route: 065
  9. FOLIC ACID [Concomitant]
     Active Substance: FOLIC ACID
     Indication: Product used for unknown indication
     Dosage: 5 MG, QW
     Route: 048
     Dates: start: 20210513
  10. ELIQUIS [Concomitant]
     Active Substance: APIXABAN
     Indication: Atrial fibrillation
     Dosage: 5 MG, BID
     Route: 048
     Dates: start: 20210513

REACTIONS (39)
  - Death [Fatal]
  - Dyspnoea exertional [Not Recovered/Not Resolved]
  - Squamous cell carcinoma of lung [Recovered/Resolved with Sequelae]
  - Atrial fibrillation [Unknown]
  - Aspergillus infection [Unknown]
  - Pulmonary atypical adenomatous hyperplasia [Unknown]
  - Pulmonary hypertension [Unknown]
  - Tricuspid valve incompetence [Unknown]
  - Bronchial carcinoma [Unknown]
  - Pulmonary haematoma [Unknown]
  - Pneumoconiosis [Unknown]
  - Combined pulmonary fibrosis and emphysema [Unknown]
  - Idiopathic pulmonary fibrosis [Unknown]
  - Hypoxia [Unknown]
  - Mitral valve incompetence [Unknown]
  - Endometrial cancer [Unknown]
  - Pleural thickening [Unknown]
  - Hypertension [Unknown]
  - Bronchitis [Unknown]
  - Pulmonary mass [Unknown]
  - Lymphadenopathy [Unknown]
  - Adrenomegaly [Unknown]
  - Chronic obstructive pulmonary disease [Not Recovered/Not Resolved]
  - Obstructive airways disorder [Unknown]
  - Muscle spasms [Unknown]
  - Cholelithiasis [Unknown]
  - Accessory spleen [Unknown]
  - Adrenal mass [Unknown]
  - Ketonuria [Unknown]
  - Leukocyturia [Unknown]
  - Blood cholesterol increased [Unknown]
  - Low density lipoprotein increased [Unknown]
  - Oxygen saturation decreased [Unknown]
  - Adrenal adenoma [Unknown]
  - Emphysema [Unknown]
  - Drug resistance [Unknown]
  - Aortic valve sclerosis [Unknown]
  - Red cell distribution width increased [Unknown]
  - Granulocyte count decreased [Unknown]

NARRATIVE: CASE EVENT DATE: 20201201
